FAERS Safety Report 6277849-6 (Version None)
Quarter: 2009Q3

REPORT INFORMATION
  Report Type: 
  Country: None (occurrence: None)
  Receive Date: 20090717
  Receipt Date: 20090717
  Transmission Date: 20100115
  Serious: Yes (Hospitalization)
  Sender: FDA-Public Use
  Company Number: None

PATIENT
  Age: 60 Year
  Sex: Male

DRUGS (2)
  1. LIALDA [Suspect]
     Indication: COLITIS ULCERATIVE
     Dates: start: 20090704, end: 20090705
  2. LIALDA [Suspect]
     Indication: COLITIS ULCERATIVE
     Dates: start: 20090715, end: 20090716

REACTIONS (1)
  - PANCREATITIS ACUTE [None]
